FAERS Safety Report 16991326 (Version 1)
Quarter: 2019Q4

REPORT INFORMATION
  Report Type: Spontaneous
  Country: FR (occurrence: FR)
  Receive Date: 20191104
  Receipt Date: 20191104
  Transmission Date: 20200122
  Serious: Yes (Other)
  Sender: FDA-Public Use
  Company Number: FR-BAUSCH-BL-2019-059459

PATIENT
  Age: 51 Year
  Sex: Female

DRUGS (8)
  1. PREDNISOLONE. [Suspect]
     Active Substance: PREDNISOLONE
     Indication: RASH MACULO-PAPULAR
     Route: 048
     Dates: start: 20190220, end: 20190225
  2. PARACETAMOL [Suspect]
     Active Substance: ACETAMINOPHEN
     Indication: INFLUENZA LIKE ILLNESS
     Route: 048
     Dates: start: 20190206, end: 20190211
  3. ACETYLCYSTEINE. [Suspect]
     Active Substance: ACETYLCYSTEINE
     Indication: INFLUENZA LIKE ILLNESS
     Route: 048
     Dates: start: 20190206, end: 20190211
  4. BIOCALYPTOL [Concomitant]
     Indication: INFLUENZA LIKE ILLNESS
     Route: 048
     Dates: start: 20190206, end: 20190211
  5. VITAMINE C [Suspect]
     Active Substance: ASCORBIC ACID
     Indication: VITAMIN SUPPLEMENTATION
     Route: 048
     Dates: start: 20190206, end: 20190211
  6. LIMONENE [Suspect]
     Active Substance: LIMONENE, (+/-)-
     Indication: INFLUENZA LIKE ILLNESS
     Route: 048
     Dates: start: 20190206, end: 20190225
  7. GIBITER EASYHALER [Suspect]
     Active Substance: BUDESONIDE\FORMOTEROL FUMARATE DIHYDRATE
     Indication: INFLUENZA LIKE ILLNESS
     Route: 055
     Dates: start: 20190211, end: 20190220
  8. TUSSIDANE [Suspect]
     Active Substance: DEXTROMETHORPHAN HYDROBROMIDE
     Indication: INFLUENZA LIKE ILLNESS
     Route: 048
     Dates: start: 20190211, end: 20190220

REACTIONS (3)
  - Eosinophilia [Recovered/Resolved]
  - Rash maculo-papular [Recovered/Resolved]
  - Tongue oedema [Recovered/Resolved]

NARRATIVE: CASE EVENT DATE: 20190220
